FAERS Safety Report 10220560 (Version 1)
Quarter: 2014Q2

REPORT INFORMATION
  Report Type: Spontaneous
  Country: KR (occurrence: None)
  Receive Date: 20140604
  Receipt Date: 20140604
  Transmission Date: 20141212
  Serious: Yes (Hospitalization)
  Sender: FDA-Public Use
  Company Number: FK201402074

PATIENT
  Age: 55 Year
  Sex: Male

DRUGS (1)
  1. GENTAMICIN [Suspect]
     Indication: LIGAMENT SPRAIN
     Route: 030

REACTIONS (2)
  - Embolia cutis medicamentosa [None]
  - Drug administration error [None]
